FAERS Safety Report 11865273 (Version 1)
Quarter: 2015Q4

REPORT INFORMATION
  Report Type: Spontaneous
  Country: US (occurrence: US)
  Receive Date: 20151223
  Receipt Date: 20151223
  Transmission Date: 20160305
  Serious: Yes (Other)
  Sender: FDA-Public Use
  Company Number: US-PFIZER INC-2015457134

PATIENT
  Age: 46 Year
  Sex: Male

DRUGS (4)
  1. GABAPENTIN. [Suspect]
     Active Substance: GABAPENTIN
     Dosage: 1200 MG, UNK
  2. VICOPROFEN [Concomitant]
     Active Substance: HYDROCODONE BITARTRATE\IBUPROFEN
     Indication: ARTHRALGIA
  3. GABAPENTIN. [Suspect]
     Active Substance: GABAPENTIN
     Indication: ARTHRALGIA
     Dosage: OVER 1000MG A DAY
     Dates: start: 2010, end: 201409
  4. VICOPROFEN [Concomitant]
     Active Substance: HYDROCODONE BITARTRATE\IBUPROFEN
     Indication: SCAR PAIN
     Dosage: 7.5 MG, 4X/DAY
     Route: 048
     Dates: end: 2014

REACTIONS (6)
  - Pain in extremity [Unknown]
  - Streptococcal infection [Unknown]
  - Arthropathy [Unknown]
  - Drug ineffective for unapproved indication [Unknown]
  - Staphylococcal infection [Unknown]
  - Scar [Unknown]

NARRATIVE: CASE EVENT DATE: 2010
